FAERS Safety Report 23099102 (Version 3)
Quarter: 2023Q4

REPORT INFORMATION
  Report Type: Spontaneous
  Country: US (occurrence: US)
  Receive Date: 20231024
  Receipt Date: 20231106
  Transmission Date: 20240110
  Serious: No
  Sender: FDA-Public Use
  Company Number: US-AMGEN-USASP2023188695

PATIENT
  Age: 72 Year
  Sex: Female

DRUGS (1)
  1. REPATHA [Suspect]
     Active Substance: EVOLOCUMAB
     Indication: Product used for unknown indication
     Dosage: 140 MILLIGRAM, Q2WK
     Route: 065

REACTIONS (5)
  - Wrong technique in product usage process [Unknown]
  - Drug dose omission by device [Unknown]
  - Device use error [Unknown]
  - Accidental exposure to product [Unknown]
  - Injection site bruising [Unknown]

NARRATIVE: CASE EVENT DATE: 20231001
